FAERS Safety Report 4221199 (Version 3)
Quarter: 2020Q1

REPORT INFORMATION
  Report Type: Report from Study
  Country: US (occurrence: US)
  Receive Date: 20041004
  Receipt Date: 20200326
  Transmission Date: 20200409
  Serious: Yes (Other)
  Sender: FDA-Public Use
  Company Number: US-JNJFOC-20040906935

PATIENT
  Age: 42 Year
  Sex: Female
  Weight: 60.84 kg

DRUGS (2)
  1. CISAPRIDE [Suspect]
     Active Substance: CISAPRIDE
     Indication: CONSTIPATION
     Route: 048
     Dates: start: 20040818, end: 20040907
  2. MIRALAX [Concomitant]
     Active Substance: POLYETHYLENE GLYCOL 3350
     Indication: FUNCTIONAL GASTROINTESTINAL DISORDER
     Dosage: MIX 255 GR, BOTTLE WITH 6 FLUID OUNCES GATORADE
     Dates: start: 20040828, end: 20040828

REACTIONS (2)
  - Supraventricular extrasystoles [Recovered/Resolved]
  - Electrocardiogram T wave inversion [Recovered/Resolved]

NARRATIVE: CASE EVENT DATE: 20040905
